FAERS Safety Report 4901647-6 (Version None)
Quarter: 2006Q1

REPORT INFORMATION
  Report Type: 
  Country: None (occurrence: None)
  Receive Date: 20060206
  Receipt Date: 20060202
  Transmission Date: 20060701
  Serious: Yes (Other)
  Sender: FDA-Public Use
  Company Number: US-GLAXOSMITHKLINE-A0592052A

PATIENT
  Age: 32 Year
  Sex: Female

DRUGS (9)
  1. BC HEADACHE POWDER [Suspect]
     Indication: PAIN
     Route: 048
  2. BC ARTHRITIS STRENGTH POWDER [Suspect]
     Indication: PAIN
     Route: 048
  3. CYMBALTA [Concomitant]
  4. PROZAC [Concomitant]
  5. XANAX [Concomitant]
  6. PREMARIN [Concomitant]
  7. GEODON [Concomitant]
  8. PREVACID [Concomitant]
  9. SEROQUEL [Concomitant]

REACTIONS (9)
  - DIZZINESS [None]
  - EATING DISORDER [None]
  - EYELID DISORDER [None]
  - FEELING ABNORMAL [None]
  - HAEMATEMESIS [None]
  - INTENTIONAL DRUG MISUSE [None]
  - MALAISE [None]
  - PRURITUS [None]
  - RECTAL HAEMORRHAGE [None]
